FAERS Safety Report 20145953 (Version 3)
Quarter: 2024Q4

REPORT INFORMATION
  Report Type: Report from Study
  Country: FR (occurrence: FR)
  Receive Date: 20211203
  Receipt Date: 20241025
  Transmission Date: 20250115
  Serious: Yes (Death)
  Sender: PFIZER
  Company Number: FR-PFIZER INC-202101691550

PATIENT
  Age: 47 Year
  Sex: Female
  Weight: 99 kg

DRUGS (1)
  1. TALZENNA [Suspect]
     Active Substance: TALAZOPARIB TOSYLATE
     Indication: Breast cancer female
     Dosage: 0.75 MG, DAILY
     Route: 048
     Dates: start: 20201007, end: 20201110

REACTIONS (2)
  - Device related thrombosis [Fatal]
  - Hyperaesthesia [Fatal]

NARRATIVE: CASE EVENT DATE: 20210117
